FAERS Safety Report 13918382 (Version 2)
Quarter: 2018Q4

REPORT INFORMATION
  Report Type: Spontaneous
  Country: FR (occurrence: FR)
  Receive Date: 20170829
  Receipt Date: 20181015
  Transmission Date: 20190204
  Serious: Yes (Other)
  Sender: FDA-Public Use
  Company Number: FR-MERCK KGAA-2025260

PATIENT
  Age: 53 Year
  Sex: Female
  Weight: 59 kg

DRUGS (2)
  1. EUTHYROX [Suspect]
     Active Substance: LEVOTHYROXINE SODIUM
     Indication: POST PROCEDURAL HYPOTHYROIDISM
     Route: 048
     Dates: start: 20170601, end: 2018
  2. EUTHYROX [Suspect]
     Active Substance: LEVOTHYROXINE SODIUM
     Route: 048

REACTIONS (13)
  - Myalgia [Recovering/Resolving]
  - Amnesia [Recovering/Resolving]
  - Menstrual disorder [Not Recovered/Not Resolved]
  - Headache [Recovering/Resolving]
  - Eczema [Not Recovered/Not Resolved]
  - Diffuse alopecia [Recovered/Resolved]
  - Insomnia [Recovering/Resolving]
  - Blood thyroid stimulating hormone increased [Not Recovered/Not Resolved]
  - Asthenia [Recovering/Resolving]
  - Stress [Recovering/Resolving]
  - Arthralgia [Recovering/Resolving]
  - Vertigo [Recovering/Resolving]
  - Palpitations [Recovering/Resolving]

NARRATIVE: CASE EVENT DATE: 2017
